FAERS Safety Report 7421669-3 (Version None)
Quarter: 2011Q2

REPORT INFORMATION
  Report Type: 
  Country: None (occurrence: None)
  Receive Date: 20110418
  Receipt Date: 20110408
  Transmission Date: 20111010
  Serious: Yes (Hospitalization, Other)
  Sender: FDA-Public Use
  Company Number: FR-ROCHE-657327

PATIENT
  Sex: Female
  Weight: 72 kg

DRUGS (7)
  1. COPEGUS [Suspect]
     Route: 048
     Dates: start: 20090820, end: 20091001
  2. NORSET [Concomitant]
     Indication: DEPRESSION
     Route: 048
  3. NEORECORMON [Suspect]
     Indication: ANAEMIA
     Dosage: FORM: INJECTION
     Route: 058
     Dates: start: 20090201, end: 20091001
  4. PEGASYS [Suspect]
     Indication: HEPATITIS C
     Dosage: FORM: INJECTION
     Route: 058
     Dates: start: 20090213, end: 20091001
  5. COPEGUS [Suspect]
     Indication: HEPATITIS C
     Dosage: DOSE REDUCED
     Route: 048
     Dates: start: 20090213
  6. NOCTRAN [Concomitant]
     Indication: DEPRESSION
     Dosage: OTHER INDICATION: INSOMNIA
     Route: 048
  7. SUBUTEX [Concomitant]
     Dosage: USED AS SUBSTITUTION.
     Route: 048

REACTIONS (3)
  - ANTI-ERYTHROPOIETIN ANTIBODY POSITIVE [None]
  - ANAEMIA [None]
  - GENERAL PHYSICAL HEALTH DETERIORATION [None]
